FAERS Safety Report 8695128 (Version 2)
Quarter: 2013Q4

REPORT INFORMATION
  Report Type: Spontaneous
  Country: US (occurrence: US)
  Receive Date: 20120731
  Receipt Date: 20131106
  Transmission Date: 20140711
  Serious: Yes (Other)
  Sender: FDA-Public Use
  Company Number: US-009507513-1207USA010593

PATIENT
  Age: 69 Year
  Sex: Female

DRUGS (4)
  1. ZOCOR [Suspect]
     Route: 048
  2. METFORMIN [Suspect]
     Dosage: 500 MG, BID
  3. SOMAVERT [Suspect]
     Dosage: 15 MG, QD
  4. LIPITOR [Suspect]
     Dosage: 20 MG, QD

REACTIONS (6)
  - Lichen planus [Unknown]
  - Rash [Unknown]
  - Urticaria [Unknown]
  - Vitamin D deficiency [Unknown]
  - Drug ineffective [Unknown]
  - Pruritus [Unknown]
